FAERS Safety Report 12520873 (Version 1)
Quarter: 2016Q2

REPORT INFORMATION
  Report Type: Spontaneous
  Country: US (occurrence: None)
  Receive Date: 20160630
  Receipt Date: 20160630
  Transmission Date: 20160815
  Serious: No
  Sender: FDA-Public Use
  Company Number: None

PATIENT
  Age: 60 Year
  Sex: Female
  Weight: 85.28 kg

DRUGS (2)
  1. OLANZAPINE. [Suspect]
     Active Substance: OLANZAPINE
     Dates: start: 20130609
  2. ZYPREXA RELPREVV [Suspect]
     Active Substance: OLANZAPINE PAMOATE
     Dates: start: 20130609

REACTIONS (6)
  - Hyperphagia [None]
  - Somnolence [None]
  - Liver injury [None]
  - Pollakiuria [None]
  - Amnesia [None]
  - Breast enlargement [None]

NARRATIVE: CASE EVENT DATE: 201605
